FAERS Safety Report 5170434-9 (Version None)
Quarter: 2006Q4

REPORT INFORMATION
  Report Type: 
  Country: None (occurrence: None)
  Receive Date: 20061204
  Receipt Date: 20061121
  Transmission Date: 20070319
  Serious: Yes (Hospitalization, Other)
  Sender: FDA-Public Use
  Company Number: S06-GER-03150-01

PATIENT
  Age: 84 Year
  Sex: Female

DRUGS (1)
  1. CIPRALEX (ESCITALOPRAM) [Suspect]
     Indication: DEPRESSION
     Dosage: 3 DROPS QD PO
     Route: 048
     Dates: start: 20060726

REACTIONS (1)
  - CONVULSION [None]
